FAERS Safety Report 6413942-2 (Version None)
Quarter: 2009Q4

REPORT INFORMATION
  Report Type: 
  Country: None (occurrence: None)
  Receive Date: 20091026
  Receipt Date: 20091014
  Transmission Date: 20100525
  Serious: Yes (Hospitalization)
  Sender: FDA-Public Use
  Company Number: US-ELI_LILLY_AND_COMPANY-US200910003703

PATIENT
  Age: 80 Year
  Sex: Male

DRUGS (2)
  1. FORTEO [Suspect]
     Indication: OSTEOPOROSIS
     Dates: start: 20090601, end: 20090101
  2. DIGOXIN [Concomitant]

REACTIONS (4)
  - ANGER [None]
  - CONTUSION [None]
  - FALL [None]
  - SKIN LACERATION [None]
